FAERS Safety Report 14034216 (Version 1)
Quarter: 2017Q4

REPORT INFORMATION
  Report Type: Spontaneous
  Country: US (occurrence: US)
  Receive Date: 20171003
  Receipt Date: 20171003
  Transmission Date: 20180321
  Serious: No
  Sender: FDA-Public Use
  Company Number: US-TEVA-728899USA

PATIENT
  Sex: Male

DRUGS (2)
  1. CLONAZEPAM. [Suspect]
     Active Substance: CLONAZEPAM
     Indication: SLEEP DISORDER
     Dates: start: 20161230
  2. CLONAZEPAM. [Suspect]
     Active Substance: CLONAZEPAM
     Indication: PALPITATIONS

REACTIONS (2)
  - Drug effect incomplete [Unknown]
  - Insomnia [Unknown]

NARRATIVE: CASE EVENT DATE: 20161230
